FAERS Safety Report 8275923-6 (Version None)
Quarter: 2012Q2

REPORT INFORMATION
  Report Type: 
  Country: None (occurrence: None)
  Receive Date: 20120412
  Receipt Date: 20120410
  Transmission Date: 20120825
  Serious: No
  Sender: FDA-Public Use
  Company Number: US-PFIZER INC-2012089729

PATIENT
  Sex: Male
  Weight: 113.4 kg

DRUGS (3)
  1. LORAZEPAM [Concomitant]
     Dosage: UNK
  2. LIPITOR [Suspect]
     Indication: BLOOD CHOLESTEROL INCREASED
     Dosage: 40 MG, 1X/DAY
     Route: 048
     Dates: start: 20120403
  3. METOPROLOL [Concomitant]
     Dosage: UNK

REACTIONS (1)
  - RENAL PAIN [None]
